FAERS Safety Report 5194980-7 (Version None)
Quarter: 2006Q4

REPORT INFORMATION
  Report Type: 
  Country: None (occurrence: None)
  Receive Date: 20061229
  Receipt Date: 20061219
  Transmission Date: 20070319
  Serious: Yes (Other)
  Sender: FDA-Public Use
  Company Number: US-ROCHE-476219

PATIENT
  Age: 54 Year
  Sex: Male

DRUGS (4)
  1. PEGASYS [Suspect]
     Route: 065
     Dates: start: 20061011, end: 20061115
  2. COPEGUS [Suspect]
     Route: 065
     Dates: start: 20061011, end: 20061115
  3. TEGRETOL [Concomitant]
  4. CLORAZEPATE [Concomitant]

REACTIONS (2)
  - CONVULSION [None]
  - LOSS OF CONSCIOUSNESS [None]
